FAERS Safety Report 7280712-5 (Version None)
Quarter: 2011Q1

REPORT INFORMATION
  Report Type: 
  Country: None (occurrence: None)
  Receive Date: 20110208
  Receipt Date: 20110201
  Transmission Date: 20110831
  Serious: Yes (Hospitalization)
  Sender: FDA-Public Use
  Company Number: B0697153A

PATIENT
  Sex: Male

DRUGS (3)
  1. CLAMOXYL [Suspect]
     Indication: BRONCHITIS
     Dosage: 1G THREE TIMES PER DAY
     Route: 048
     Dates: start: 20101223, end: 20110103
  2. ACICLOVIR [Suspect]
     Indication: ENCEPHALOPATHY
     Dosage: 1200MG TWICE PER DAY
     Route: 065
     Dates: start: 20110112, end: 20110113
  3. AMOXICILLIN [Suspect]
     Route: 042
     Dates: start: 20110112, end: 20110113

REACTIONS (5)
  - OVERDOSE [None]
  - RENAL FAILURE ACUTE [None]
  - MENINGITIS ASEPTIC [None]
  - CONFUSIONAL STATE [None]
  - HEADACHE [None]
